FAERS Safety Report 14684416 (Version 3)
Quarter: 2018Q2

REPORT INFORMATION
  Report Type: Spontaneous
  Country: TW (occurrence: TW)
  Receive Date: 20180327
  Receipt Date: 20180502
  Transmission Date: 20180711
  Serious: Yes (Other)
  Sender: FDA-Public Use
  Company Number: PHHY2018TW051292

PATIENT
  Sex: Male

DRUGS (3)
  1. STELARA [Concomitant]
     Active Substance: USTEKINUMAB
     Dosage: 45 MG/0,5 ML/1 AMP ST
     Route: 065
     Dates: start: 20180319, end: 20180319
  2. STELARA [Concomitant]
     Active Substance: USTEKINUMAB
     Indication: PSORIASIS
     Dosage: UNK
     Route: 065
  3. ENTRESTO [Suspect]
     Active Substance: SACUBITRIL\VALSARTAN
     Indication: CARDIAC FAILURE
     Dosage: 0.5 DF (100 MG), BID
     Route: 048
     Dates: start: 20180308, end: 20180313

REACTIONS (7)
  - Oedema peripheral [Recovering/Resolving]
  - Pain of skin [Recovering/Resolving]
  - Wrong technique in product usage process [Unknown]
  - Pruritus [Unknown]
  - Peripheral swelling [Recovering/Resolving]
  - Gait inability [Recovering/Resolving]
  - Rash [Recovering/Resolving]

NARRATIVE: CASE EVENT DATE: 20180308
